FAERS Safety Report 4939740-4 (Version None)
Quarter: 2006Q1

REPORT INFORMATION
  Report Type: 
  Country: None (occurrence: None)
  Receive Date: 20060310
  Receipt Date: 20050207
  Transmission Date: 20060701
  Serious: Yes (Hospitalization)
  Sender: FDA-Public Use
  Company Number: US-MERCK-0502USA00928

PATIENT
  Age: 78 Year
  Sex: Female
  Weight: 91 kg

DRUGS (3)
  1. VIOXX [Suspect]
     Indication: PAIN
     Route: 048
     Dates: start: 20000103, end: 20030813
  2. VIOXX [Suspect]
     Indication: MONARTHRITIS
     Route: 048
     Dates: start: 20000103, end: 20030813
  3. ECOTRIN [Concomitant]
     Route: 065

REACTIONS (23)
  - ACUTE RESPIRATORY FAILURE [None]
  - ANAEMIA OF CHRONIC DISEASE [None]
  - ANOXIC ENCEPHALOPATHY [None]
  - ASPIRATION [None]
  - ATRIAL FIBRILLATION [None]
  - ATRIAL FLUTTER [None]
  - BACTERIAL SEPSIS [None]
  - BASAL CELL CARCINOMA [None]
  - BRAIN DEATH [None]
  - BRONCHIECTASIS [None]
  - CARDIAC FAILURE CONGESTIVE [None]
  - CARDIO-RESPIRATORY ARREST [None]
  - DEEP VEIN THROMBOSIS [None]
  - DEMENTIA [None]
  - DUODENAL ULCER HAEMORRHAGE [None]
  - HEART INJURY [None]
  - HIATUS HERNIA [None]
  - HYPERGLYCAEMIA [None]
  - JOINT DISLOCATION [None]
  - MYOCARDIAL INFARCTION [None]
  - PNEUMONIA STAPHYLOCOCCAL [None]
  - RENAL FAILURE ACUTE [None]
  - URINARY TRACT INFECTION [None]
